FAERS Safety Report 12234072 (Version 1)
Quarter: 2016Q2

REPORT INFORMATION
  Report Type: Spontaneous
  Country: US (occurrence: None)
  Receive Date: 20160401
  Receipt Date: 20160401
  Transmission Date: 20160815
  Serious: Yes (Disabling)
  Sender: FDA-Public Use
  Company Number: None

PATIENT
  Age: 56 Year
  Sex: Female
  Weight: 59.88 kg

DRUGS (3)
  1. STATIN [Concomitant]
     Active Substance: UNSPECIFIED INGREDIENT
  2. RIZATRIPTAN BENZOATE 5 MG, 5 MG [Suspect]
     Active Substance: RIZATRIPTAN BENZOATE
     Indication: HEADACHE
     Route: 048
     Dates: start: 20160323, end: 20160324
  3. DROPS FOR GLAUCOMA [Concomitant]

REACTIONS (6)
  - Fatigue [None]
  - Impaired work ability [None]
  - Vitreous floaters [None]
  - Fear [None]
  - Activities of daily living impaired [None]
  - Feeling abnormal [None]

NARRATIVE: CASE EVENT DATE: 20160323
